FAERS Safety Report 5216698-4 (Version None)
Quarter: 2007Q1

REPORT INFORMATION
  Report Type: 
  Country: None (occurrence: None)
  Receive Date: 20061130
  Receipt Date: 20060825
  Transmission Date: 20070707
  Serious: Yes (Hospitalization)
  Sender: FDA-Public Use
  Company Number: US200603004548

PATIENT
  Age: 36 Year
  Sex: Female
  Weight: 90.7 kg

DRUGS (1)
  1. ZYPREXA [Suspect]
     Dates: start: 19990701

REACTIONS (10)
  - CONDITION AGGRAVATED [None]
  - DIABETES MELLITUS [None]
  - DIABETIC KETOACIDOSIS [None]
  - FLANK PAIN [None]
  - HYPERGLYCAEMIA [None]
  - HYPOVOLAEMIA [None]
  - NAUSEA [None]
  - TACHYCARDIA [None]
  - VISION BLURRED [None]
  - VOMITING [None]
